FAERS Safety Report 21585803 (Version 2)
Quarter: 2022Q4

REPORT INFORMATION
  Report Type: Spontaneous
  Country: BR (occurrence: BR)
  Receive Date: 20221111
  Receipt Date: 20221118
  Transmission Date: 20230112
  Serious: Yes (Death, Other)
  Sender: FDA-Public Use
  Company Number: BR-PFIZER INC-PV202200101228

PATIENT
  Age: 74 Year
  Sex: Male

DRUGS (1)
  1. SUTENT [Suspect]
     Active Substance: SUNITINIB MALATE
     Indication: Neoplasm malignant
     Dosage: UNK

REACTIONS (5)
  - Neoplasm progression [Fatal]
  - Cardio-respiratory arrest [Fatal]
  - Asthenia [Unknown]
  - Brain hypoxia [Unknown]
  - Illness [Unknown]
